FAERS Safety Report 4764665-7 (Version None)
Quarter: 2005Q3

REPORT INFORMATION
  Report Type: 
  Country: None (occurrence: None)
  Receive Date: 20050909
  Receipt Date: 20050513
  Transmission Date: 20060218
  Serious: Yes (Hospitalization)
  Sender: FDA-Public Use
  Company Number: DE-GLAXOSMITHKLINE-D0046595A

PATIENT
  Age: 66 Year
  Sex: Male
  Weight: 95 kg

DRUGS (3)
  1. AVODART [Suspect]
     Indication: PROSTATIC ADENOMA
     Dosage: .5MG PER DAY
     Route: 048
  2. CONCOR [Concomitant]
     Indication: HYPERTENSION
     Dosage: 5MG PER DAY
     Route: 065
  3. FURORESE [Concomitant]
     Indication: HYPERTENSION
     Dosage: 30MG PER DAY
     Route: 065

REACTIONS (9)
  - BILIARY TRACT DISORDER [None]
  - HEPATIC ENZYME INCREASED [None]
  - HEPATIC STEATOSIS [None]
  - LIVER DISORDER [None]
  - LYMPHOMA [None]
  - PANCREATITIS CHRONIC [None]
  - RENAL CYST [None]
  - SPINAL OSTEOARTHRITIS [None]
  - TUMOUR MARKER INCREASED [None]
